FAERS Safety Report 24149698 (Version 1)
Quarter: 2024Q3

REPORT INFORMATION
  Report Type: Spontaneous
  Country: US (occurrence: US)
  Receive Date: 20240730
  Receipt Date: 20240730
  Transmission Date: 20241017
  Serious: Yes (Other)
  Sender: NOVO NORDISK
  Company Number: US-NOVOPROD-1260262

PATIENT
  Sex: Female

DRUGS (1)
  1. WEGOVY [Suspect]
     Active Substance: SEMAGLUTIDE
     Indication: Body mass index increased
     Dosage: UNK
     Route: 058

REACTIONS (6)
  - Atrial fibrillation [Unknown]
  - Arrhythmia [Unknown]
  - Pulmonary congestion [Unknown]
  - Cardiac failure [Unknown]
  - Hepatic steatosis [Unknown]
  - Hypertension [Unknown]
